FAERS Safety Report 6566755-5 (Version None)
Quarter: 2010Q1

REPORT INFORMATION
  Report Type: 
  Country: None (occurrence: None)
  Receive Date: 20100202
  Receipt Date: 20100121
  Transmission Date: 20100710
  Serious: Yes (Other)
  Sender: FDA-Public Use
  Company Number: US-PFIZER INC-2010008976

PATIENT
  Sex: Male

DRUGS (1)
  1. CHANTIX [Suspect]
     Indication: SMOKING CESSATION THERAPY
     Dosage: UNK
     Route: 048
     Dates: start: 20060801

REACTIONS (5)
  - ABNORMAL BEHAVIOUR [None]
  - DEPRESSION [None]
  - IMPAIRED DRIVING ABILITY [None]
  - MOOD ALTERED [None]
  - SUICIDE ATTEMPT [None]
